FAERS Safety Report 6663278-X (Version None)
Quarter: 2010Q1

REPORT INFORMATION
  Report Type: 
  Country: None (occurrence: None)
  Receive Date: 20100331
  Receipt Date: 20100331
  Transmission Date: 20100710
  Serious: No
  Sender: FDA-Public Use
  Company Number: None

PATIENT
  Age: 67 Year
  Sex: Male

DRUGS (1)
  1. HYDROMORPHONE HCL [Suspect]
     Dosage: 1.5 MG ONCE IV
     Route: 042
     Dates: start: 20091205, end: 20091205

REACTIONS (4)
  - ANXIETY [None]
  - DELIRIUM [None]
  - PRURITUS [None]
  - RASH [None]
